FAERS Safety Report 6989402-7 (Version None)
Quarter: 2010Q3

REPORT INFORMATION
  Report Type: 
  Country: None (occurrence: None)
  Receive Date: 20100916
  Receipt Date: 20091030
  Transmission Date: 20110219
  Serious: Yes (Death)
  Sender: FDA-Public Use
  Company Number: BO-PFIZER INC-2009293279

PATIENT
  Age: 72 Year
  Sex: Male

DRUGS (2)
  1. LYRICA [Suspect]
     Indication: PAIN
     Dosage: 75 MG, 1X/DAY
     Route: 048
     Dates: start: 20091012
  2. CELEBREX [Suspect]
     Indication: PAIN
     Dosage: UNK
     Route: 048
     Dates: start: 20091012

REACTIONS (1)
  - PULMONARY EMBOLISM [None]
